FAERS Safety Report 16714584 (Version 1)
Quarter: 2019Q3

REPORT INFORMATION
  Report Type: Spontaneous
  Country: CZ (occurrence: CZ)
  Receive Date: 20190819
  Receipt Date: 20190819
  Transmission Date: 20191004
  Serious: Yes (Other)
  Sender: FDA-Public Use
  Company Number: PHHY2019CZ189707

PATIENT
  Age: 50 Year
  Sex: Female

DRUGS (5)
  1. SANDOSTATIN LAR DEPOT [Suspect]
     Active Substance: OCTREOTIDE ACETATE
     Indication: NEUROENDOCRINE TUMOUR
     Dosage: 30 MG, (EVERY 28 DAYS
     Route: 065
     Dates: start: 201001
  2. GLUCOPHAGE [Concomitant]
     Active Substance: METFORMIN HYDROCHLORIDE
     Indication: DIABETES MELLITUS
     Dosage: UNK
     Route: 065
  3. DACARBAZINE. [Concomitant]
     Active Substance: DACARBAZINE
     Indication: PRODUCT USED FOR UNKNOWN INDICATION
     Dosage: 800 MG/M2, (EVERY 21 DAYS)
     Route: 065
     Dates: start: 201812, end: 201906
  4. AGEN [Concomitant]
     Active Substance: AMLODIPINE BESYLATE
     Indication: HYPERTENSION
     Dosage: UNK
     Route: 065
  5. PRESTARIUM [Concomitant]
     Active Substance: PERINDOPRIL
     Indication: HYPERTENSION
     Dosage: UNK
     Route: 065

REACTIONS (11)
  - Ovarian mass [Unknown]
  - Abdominal pain lower [Unknown]
  - Neuroendocrine tumour [Not Recovered/Not Resolved]
  - Asthenia [Unknown]
  - Ascites [Unknown]
  - Blood chromogranin A increased [Recovering/Resolving]
  - Metastases to liver [Not Recovered/Not Resolved]
  - Metastases to breast [Unknown]
  - Carbohydrate antigen 125 increased [Unknown]
  - Weight decreased [Unknown]
  - Malignant neoplasm progression [Not Recovered/Not Resolved]

NARRATIVE: CASE EVENT DATE: 201604
